FAERS Safety Report 14907343 (Version 2)
Quarter: 2018Q4

REPORT INFORMATION
  Report Type: Spontaneous
  Country: FR (occurrence: FR)
  Receive Date: 20180517
  Receipt Date: 20181024
  Transmission Date: 20190204
  Serious: Yes (Other)
  Sender: FDA-Public Use
  Company Number: FR-MERCK KGAA-2047977

PATIENT
  Age: 59 Year
  Sex: Female

DRUGS (2)
  1. EUTHYROX [Suspect]
     Active Substance: LEVOTHYROXINE SODIUM
     Indication: PRODUCT USED FOR UNKNOWN INDICATION
     Dates: start: 20170815
  2. NOVOTHYROX [Suspect]
     Active Substance: LEVOTHYROXINE SODIUM
     Dates: start: 201709

REACTIONS (14)
  - Fatigue [None]
  - Vertigo [None]
  - Dupuytren^s contracture [None]
  - Balance disorder [None]
  - Stress [None]
  - Hot flush [None]
  - Syncope [None]
  - Loss of personal independence in daily activities [None]
  - Impaired work ability [None]
  - Nervousness [None]
  - Somnolence [None]
  - Anxiety [None]
  - Hyperthyroidism [None]
  - Irritability [None]

NARRATIVE: CASE EVENT DATE: 2017
